FAERS Safety Report 9276121 (Version 1)
Quarter: 2013Q2

REPORT INFORMATION
  Report Type: Report from Study
  Country: US (occurrence: US)
  Receive Date: 20130507
  Receipt Date: 20130507
  Transmission Date: 20140414
  Serious: Yes (Other)
  Sender: FDA-Public Use
  Company Number: US-PFIZER INC-2013136899

PATIENT
  Age: 58 Year
  Sex: Female

DRUGS (4)
  1. CARBOPLATIN [Suspect]
     Indication: OVARIAN CANCER RECURRENT
     Dosage: UNK
  2. PACLITAXEL [Suspect]
     Indication: OVARIAN CANCER RECURRENT
     Dosage: UNK
  3. GEMCITABINE HYDROCHLORIDE [Suspect]
     Indication: OVARIAN CANCER RECURRENT
     Dosage: UNK
  4. LIPOSOMAL FORMULATION OF DOXORUBICIN [Suspect]
     Indication: OVARIAN CANCER RECURRENT
     Dosage: UNK

REACTIONS (6)
  - Renal failure chronic [Unknown]
  - Hypertension [None]
  - Haemolysis [None]
  - Thrombocytopenia [None]
  - Ovarian cancer recurrent [None]
  - Malignant neoplasm progression [None]
